FAERS Safety Report 14761534 (Version 1)
Quarter: 2018Q2

REPORT INFORMATION
  Report Type: Spontaneous
  Country: US (occurrence: US)
  Receive Date: 20180416
  Receipt Date: 20180416
  Transmission Date: 20180711
  Serious: No
  Sender: FDA-Public Use
  Company Number: US-BION-006119

PATIENT
  Age: 61 Year
  Sex: Male
  Weight: 93 kg

DRUGS (1)
  1. ALEVE [Suspect]
     Active Substance: NAPROXEN SODIUM
     Indication: PAIN
     Dosage: FURTHER TREATMENT PERIODS AT THE SAME DOSE?STARTED ON 13 TO 15-MAR-2017.
     Route: 048
     Dates: start: 2011

REACTIONS (1)
  - Expired product administered [Recovered/Resolved with Sequelae]

NARRATIVE: CASE EVENT DATE: 20170313
